FAERS Safety Report 9113209 (Version 2)
Quarter: 2013Q1

REPORT INFORMATION
  Report Type: Spontaneous
  Country: GB (occurrence: GB)
  Receive Date: 20130211
  Receipt Date: 20130322
  Transmission Date: 20140127
  Serious: Yes (Hospitalization, Other)
  Sender: FDA-Public Use
  Company Number: GB-VERTEX PHARMACEUTICALS INC.-2013-001842

PATIENT
  Age: 56 None
  Sex: Female

DRUGS (10)
  1. INCIVO [Suspect]
     Indication: CHRONIC HEPATITIS C
     Dosage: 750 MG, TID
     Route: 048
     Dates: start: 20120911, end: 20121002
  2. ATENOLOL [Concomitant]
     Indication: HEPATIC CIRRHOSIS
     Dosage: DOSAGE FORM: UNSPECIFIED
     Route: 065
  3. ATENOLOL [Concomitant]
     Indication: PORTAL HYPERTENSION
  4. FUROSEMIDE [Concomitant]
     Indication: HEPATIC CIRRHOSIS
     Dosage: DOSAGE FORM: UNSPECIFIED
     Route: 065
  5. FUROSEMIDE [Concomitant]
     Indication: PORTAL HYPERTENSION
  6. SPIRONOLACTONE [Concomitant]
     Indication: HEPATIC CIRRHOSIS
     Dosage: DOSAGE FORM: UNSPECIFIED
     Route: 065
  7. SPIRONOLACTONE [Concomitant]
     Indication: PORTAL HYPERTENSION
  8. OMEPRAZOLE [Concomitant]
     Indication: PRODUCT USED FOR UNKNOWN INDICATION
     Dosage: DOSAGE FORM: UNSPECIFIED
     Route: 065
  9. CYCLIZINE [Concomitant]
     Indication: NAUSEA
     Dosage: DOSAGE FORM: UNSPECIFIED
     Route: 048
     Dates: start: 20120925
  10. CIPROFLOXACIN [Concomitant]
     Indication: EAR INFECTION
     Dosage: DOSAGE FORM: EAR DROPS, DATES- FROM 27-SEP-2012 FOR 7 DAYS
     Route: 065
     Dates: start: 20120927

REACTIONS (9)
  - Renal failure acute [Unknown]
  - Dizziness [Not Recovered/Not Resolved]
  - Fatigue [Recovered/Resolved]
  - Decreased appetite [Recovered/Resolved]
  - Listless [Recovered/Resolved]
  - Depressed mood [Recovered/Resolved]
  - Nausea [Recovered/Resolved]
  - Ear infection [Unknown]
  - Drug ineffective [Unknown]
